FAERS Safety Report 6014055-4 (Version None)
Quarter: 2008Q4

REPORT INFORMATION
  Report Type: 
  Country: None (occurrence: None)
  Receive Date: 20081219
  Receipt Date: 20071114
  Transmission Date: 20090506
  Serious: No
  Sender: FDA-Public Use
  Company Number: A0694514A

PATIENT
  Age: 64 Year
  Sex: Male

DRUGS (2)
  1. AVODART [Suspect]
     Indication: BENIGN PROSTATIC HYPERPLASIA
     Route: 048
     Dates: start: 20071030
  2. CHOLESTEROL REDUCING AGENT [Concomitant]

REACTIONS (3)
  - DYSURIA [None]
  - INSOMNIA [None]
  - NAUSEA [None]
